FAERS Safety Report 25627536 (Version 1)
Quarter: 2025Q3

REPORT INFORMATION
  Report Type: Spontaneous
  Country: US (occurrence: US)
  Receive Date: 20250731
  Receipt Date: 20250731
  Transmission Date: 20251021
  Serious: Yes (Death)
  Sender: HIKMA
  Company Number: US-HIKMA PHARMACEUTICALS USA INC.-US-H14001-25-08799

PATIENT
  Age: 61 Year
  Sex: Female

DRUGS (2)
  1. FOSCARNET [Suspect]
     Active Substance: FOSCARNET
     Indication: Human herpesvirus 6 viraemia
     Route: 065
  2. GANCICLOVIR [Suspect]
     Active Substance: GANCICLOVIR
     Indication: Human herpesvirus 6 viraemia
     Route: 065

REACTIONS (1)
  - Drug ineffective [Fatal]
